FAERS Safety Report 4546204-9 (Version None)
Quarter: 2005Q1

REPORT INFORMATION
  Report Type: 
  Country: None (occurrence: None)
  Receive Date: 20050103
  Receipt Date: 20041222
  Transmission Date: 20050727
  Serious: Yes (Other)
  Sender: FDA-Public Use
  Company Number: 2004119009

PATIENT

DRUGS (3)
  1. MINIPRESS [Suspect]
     Indication: ILL-DEFINED DISORDER
     Dosage: ORAL
     Route: 048
  2. FUROSEMIDE [Suspect]
     Indication: ILL-DEFINED DISORDER
  3. MAGNESIUM OXIDE (MAGNESIUM OXIDE) [Suspect]
     Indication: ILL-DEFINED DISORDER

REACTIONS (1)
  - NEUROLEPTIC MALIGNANT SYNDROME [None]
